FAERS Safety Report 20710361 (Version 2)
Quarter: 2022Q2

REPORT INFORMATION
  Report Type: Report from Study
  Country: KR (occurrence: KR)
  Receive Date: 20220414
  Receipt Date: 20220429
  Transmission Date: 20220720
  Serious: Yes (Hospitalization, Other)
  Sender: FDA-Public Use
  Company Number: KR-TAKEDA-2022TUS024355

PATIENT
  Age: 38 Year
  Sex: Female
  Weight: 49 kg

DRUGS (29)
  1. VEDOLIZUMAB [Suspect]
     Active Substance: VEDOLIZUMAB
     Indication: Crohn^s disease
     Dosage: 300 MILLIGRAM
     Route: 042
     Dates: start: 20201209, end: 20201209
  2. VEDOLIZUMAB [Suspect]
     Active Substance: VEDOLIZUMAB
     Dosage: 300 MILLIGRAM
     Route: 042
     Dates: start: 20201223, end: 20201223
  3. VEDOLIZUMAB [Suspect]
     Active Substance: VEDOLIZUMAB
     Dosage: 300 MILLIGRAM
     Route: 042
     Dates: start: 20210120, end: 20210120
  4. VEDOLIZUMAB [Suspect]
     Active Substance: VEDOLIZUMAB
     Dosage: 300 MILLIGRAM
     Route: 042
     Dates: start: 20210217, end: 20210217
  5. VEDOLIZUMAB [Suspect]
     Active Substance: VEDOLIZUMAB
     Dosage: 300 MILLIGRAM
     Route: 042
     Dates: start: 20210414, end: 20210414
  6. VEDOLIZUMAB [Suspect]
     Active Substance: VEDOLIZUMAB
     Dosage: 300 MILLIGRAM
     Route: 042
     Dates: start: 20210609, end: 20210609
  7. VEDOLIZUMAB [Suspect]
     Active Substance: VEDOLIZUMAB
     Dosage: 300 MILLIGRAM
     Route: 042
     Dates: start: 20210804, end: 20210804
  8. VEDOLIZUMAB [Suspect]
     Active Substance: VEDOLIZUMAB
     Dosage: 300 MILLIGRAM
     Route: 042
     Dates: start: 20210929, end: 20210929
  9. VEDOLIZUMAB [Suspect]
     Active Substance: VEDOLIZUMAB
     Dosage: 300 MILLIGRAM
     Route: 042
     Dates: start: 20211125, end: 20211125
  10. VEDOLIZUMAB [Suspect]
     Active Substance: VEDOLIZUMAB
     Dosage: 300 MILLIGRAM
     Route: 042
     Dates: start: 20220120, end: 20220120
  11. ACTINAMIDE [Concomitant]
     Dosage: 1 MILLIGRAM
     Route: 030
     Dates: start: 20171122
  12. METRYNAL [Concomitant]
     Dosage: 500 MILLIGRAM, TID
     Route: 042
     Dates: start: 20220325, end: 20220404
  13. CEFTRIAXONE [Concomitant]
     Active Substance: CEFTRIAXONE
     Dosage: 500 MILLIGRAM
     Route: 042
     Dates: start: 20220325, end: 20220404
  14. COMBIFLEX PERI [Concomitant]
     Dosage: 1100 MILLILITER
     Route: 042
     Dates: start: 20220325, end: 20220328
  15. ULTRACET [Concomitant]
     Active Substance: ACETAMINOPHEN\TRAMADOL HYDROCHLORIDE
     Dosage: UNK UNK, BID
     Route: 048
     Dates: start: 20220326, end: 20220407
  16. NORZYME [Concomitant]
     Dosage: 457.7 MILLIGRAM, TID
     Route: 048
     Dates: start: 20220327, end: 20220327
  17. METOCLOPRAMIDE HYDROCHLORIDE [Concomitant]
     Active Substance: METOCLOPRAMIDE HYDROCHLORIDE
     Dosage: 10 MILLIGRAM, QD
     Route: 042
     Dates: start: 20220327, end: 20220327
  18. AMINO ACIDS\DEXTROSE\ELECTROLYTES NOS\SOYBEAN OIL\VITAMINS [Concomitant]
     Active Substance: AMINO ACIDS\DEXTROSE\ELECTROLYTES NOS\SOYBEAN OIL\VITAMINS
     Dosage: 1085 MILLILITER, QD
     Route: 042
     Dates: start: 20220328, end: 20220404
  19. VITAMINS [Concomitant]
     Active Substance: VITAMINS
     Dosage: 5 MILLILITER, QD
     Route: 042
     Dates: start: 20220328, end: 20220404
  20. FURTMAN [Concomitant]
     Dosage: 2 MILLILITER, QD
     Route: 042
     Dates: start: 20220328, end: 20220404
  21. PROFA [Concomitant]
     Dosage: UNK UNK, QD
     Route: 042
     Dates: start: 20220401, end: 20220402
  22. HYDROCORTISONE SODIUM SUCCINATE [Concomitant]
     Active Substance: HYDROCORTISONE SODIUM SUCCINATE
     Indication: Anaphylaxis prophylaxis
     Dosage: 100 MILLIGRAM
     Route: 042
     Dates: start: 20220404
  23. FLASINYL [Concomitant]
     Dosage: 250 MILLIGRAM, TID
     Route: 048
     Dates: start: 20220405
  24. BANAN [Concomitant]
     Active Substance: CEFPODOXIME PROXETIL
     Dosage: 100 MILLIGRAM, BID
     Route: 048
     Dates: start: 20220405
  25. AZABIO [Concomitant]
     Dosage: 25 MILLIGRAM, QD
     Route: 048
     Dates: start: 20170219
  26. .ALPHA.-TOCOPHEROL ACETATE\ALLANTOIN\LIDOCAINE\PREDNISOLONE [Concomitant]
     Active Substance: .ALPHA.-TOCOPHEROL ACETATE\ALLANTOIN\LIDOCAINE\PREDNISOLONE
     Dosage: UNK
     Route: 054
     Dates: start: 20210217, end: 20210928
  27. .ALPHA.-TOCOPHEROL ACETATE\ALLANTOIN\LIDOCAINE\PREDNISOLONE [Concomitant]
     Active Substance: .ALPHA.-TOCOPHEROL ACETATE\ALLANTOIN\LIDOCAINE\PREDNISOLONE
     Dosage: UNK
     Route: 054
     Dates: start: 20210929
  28. REMICADE [Concomitant]
     Active Substance: INFLIXIMAB
     Dosage: 250 MILLIGRAM
     Route: 042
     Dates: start: 20220404
  29. Venoferrum [Concomitant]
     Dosage: 100 MILLIGRAM
     Route: 042
     Dates: start: 20220120

REACTIONS (1)
  - Anal abscess [Recovered/Resolved]

NARRATIVE: CASE EVENT DATE: 20220325
